FAERS Safety Report 7516945-X (Version None)
Quarter: 2011Q2

REPORT INFORMATION
  Report Type: 
  Country: None (occurrence: None)
  Receive Date: 20110601
  Receipt Date: 20110524
  Transmission Date: 20111010
  Serious: Yes (Hospitalization, Other)
  Sender: FDA-Public Use
  Company Number: US-NAPPMUNDI-USA-2011-0067441

PATIENT
  Sex: Female
  Weight: 49.433 kg

DRUGS (2)
  1. TRAZODONE HCL [Suspect]
     Indication: INSOMNIA
     Dosage: 100 MG, HS
     Dates: start: 20110414
  2. OXYCONTIN [Suspect]
     Indication: PAIN
     Dosage: 30 MG, BID
     Route: 048
     Dates: start: 20110304

REACTIONS (8)
  - BACK INJURY [None]
  - HEAD INJURY [None]
  - DEHYDRATION [None]
  - FALL [None]
  - MENTAL IMPAIRMENT [None]
  - MUSCULAR WEAKNESS [None]
  - NECK INJURY [None]
  - HALLUCINATION [None]
